FAERS Safety Report 8210553-3 (Version None)
Quarter: 2012Q1

REPORT INFORMATION
  Report Type: 
  Country: None (occurrence: None)
  Receive Date: 20120314
  Receipt Date: 20110509
  Transmission Date: 20120608
  Serious: No
  Sender: FDA-Public Use
  Company Number: US-ASTRAZENECA-2011SE27963

PATIENT
  Sex: Female

DRUGS (1)
  1. METOPROLOL SUCCINATE [Suspect]
     Indication: HYPERTENSION
     Route: 048
     Dates: start: 20110201, end: 20110504

REACTIONS (4)
  - HEART RATE INCREASED [None]
  - FATIGUE [None]
  - BLOOD PRESSURE DECREASED [None]
  - ANXIETY [None]
